FAERS Safety Report 12943355 (Version 1)
Quarter: 2016Q4

REPORT INFORMATION
  Report Type: Spontaneous
  Country: US (occurrence: US)
  Receive Date: 20161115
  Receipt Date: 20161115
  Transmission Date: 20170207
  Serious: Yes (Death, Hospitalization, Other)
  Sender: FDA-Public Use
  Company Number: US-GLAXOSMITHKLINE-US2016GSK167153

PATIENT
  Sex: Female

DRUGS (2)
  1. LAMICTAL [Suspect]
     Active Substance: LAMOTRIGINE
     Indication: PRODUCT USED FOR UNKNOWN INDICATION
     Dosage: UNK, U
  2. REPATHA [Suspect]
     Active Substance: EVOLOCUMAB
     Indication: TYPE IIA HYPERLIPIDAEMIA
     Dosage: 140 MG/ML, Q2WK
     Route: 058
     Dates: start: 201602, end: 20160828

REACTIONS (12)
  - Meningitis viral [Unknown]
  - Cerebrovascular accident [Fatal]
  - Cough [Unknown]
  - Drug hypersensitivity [Fatal]
  - Blood disorder [Fatal]
  - Musculoskeletal stiffness [Unknown]
  - Acute myocardial infarction [Fatal]
  - Pyrexia [Unknown]
  - Mental status changes [Unknown]
  - Disseminated intravascular coagulation [Fatal]
  - Thrombocytopenia [Unknown]
  - Pain [Unknown]
